FAERS Safety Report 24428027 (Version 2)
Quarter: 2024Q4

REPORT INFORMATION
  Report Type: Spontaneous
  Country: GB (occurrence: GB)
  Receive Date: 20241011
  Receipt Date: 20241017
  Transmission Date: 20250115
  Serious: Yes (Other)
  Sender: TEVA
  Company Number: None

PATIENT
  Sex: Female

DRUGS (1)
  1. LEVOFLOXACIN [Suspect]
     Active Substance: LEVOFLOXACIN
     Indication: Infection
     Dosage: TEVA UK LEVOFLOXACIN
     Route: 065
     Dates: start: 20240929

REACTIONS (4)
  - Contraindicated product administered [Unknown]
  - Convulsive threshold lowered [Recovering/Resolving]
  - Seizure [Unknown]
  - Medication error [Unknown]

NARRATIVE: CASE EVENT DATE: 20240930
